FAERS Safety Report 13890695 (Version 2)
Quarter: 2017Q4

REPORT INFORMATION
  Report Type: Report from Study
  Country: US (occurrence: US)
  Receive Date: 20170822
  Receipt Date: 20171003
  Transmission Date: 20180320
  Serious: Yes (Life-Threatening, Disabling)
  Sender: FDA-Public Use
  Company Number: US-009507513-1708USA008407

PATIENT
  Age: 69 Year
  Sex: Male

DRUGS (1)
  1. KEYTRUDA [Suspect]
     Active Substance: PEMBROLIZUMAB
     Indication: TONSIL CANCER METASTATIC
     Dosage: UNK
     Route: 042
     Dates: start: 20161118, end: 20170623

REACTIONS (2)
  - Product use in unapproved indication [Unknown]
  - Adverse event [Not Recovered/Not Resolved]

NARRATIVE: CASE EVENT DATE: 201706
